FAERS Safety Report 25390338 (Version 2)
Quarter: 2025Q3

REPORT INFORMATION
  Report Type: Spontaneous
  Country: EU (occurrence: EU)
  Receive Date: 20250603
  Receipt Date: 20250708
  Transmission Date: 20251021
  Serious: Yes (Hospitalization, Other)
  Sender: VERTEX
  Company Number: EU-VERTEX PHARMACEUTICALS-2025-008733

PATIENT
  Age: 49 Year
  Sex: Female
  Weight: 49 kg

DRUGS (16)
  1. ELEXACAFTOR\IVACAFTOR\TEZACAFTOR [Suspect]
     Active Substance: ELEXACAFTOR\IVACAFTOR\TEZACAFTOR
     Indication: Cystic fibrosis
     Dosage: IVACAFTOR/TEZACAFTOR/ELEXACAFTOR, 2 TABS IN AM
     Route: 048
     Dates: start: 202112
  2. IVACAFTOR [Suspect]
     Active Substance: IVACAFTOR
     Indication: Cystic fibrosis
     Dosage: 1 TAB IN PM
     Route: 048
     Dates: start: 202112
  3. KEPPRA [Concomitant]
     Active Substance: LEVETIRACETAM
  4. OLANZAPINE [Concomitant]
     Active Substance: OLANZAPINE
  5. LAMICTAL [Concomitant]
     Active Substance: LAMOTRIGINE
  6. CREON [Concomitant]
     Active Substance: PANCRELIPASE AMYLASE\PANCRELIPASE LIPASE\PANCRELIPASE PROTEASE
  7. CITALOPRAM [Concomitant]
     Active Substance: CITALOPRAM
  8. COLISTIMETHATE SODIUM [Concomitant]
     Active Substance: COLISTIMETHATE SODIUM
  9. TOBI [Concomitant]
     Active Substance: TOBRAMYCIN
  10. LANSOPRAZOLE [Concomitant]
     Active Substance: LANSOPRAZOLE
  11. MOTILIUM [Concomitant]
     Active Substance: DOMPERIDONE
  12. DOCUSATE SODIUM [Concomitant]
     Active Substance: DOCUSATE SODIUM
  13. FOLIC ACID [Concomitant]
     Active Substance: FOLIC ACID
  14. MOVICOL [Concomitant]
     Active Substance: POLYETHYLENE GLYCOL 3350\POTASSIUM CHLORIDE\SODIUM BICARBONATE\SODIUM CHLORIDE
  15. DUPHALAC [Concomitant]
     Active Substance: LACTULOSE
  16. SENOKOT [Concomitant]
     Active Substance: SENNOSIDES

REACTIONS (1)
  - Basal ganglia stroke [Unknown]

NARRATIVE: CASE EVENT DATE: 20250526
